FAERS Safety Report 23295400 (Version 1)
Quarter: 2023Q4

REPORT INFORMATION
  Report Type: Spontaneous
  Country: US (occurrence: US)
  Receive Date: 20231214
  Receipt Date: 20231214
  Transmission Date: 20240110
  Serious: No
  Sender: FDA-Public Use
  Company Number: US-ALVOGEN-2023091784

PATIENT
  Age: 62 Year
  Sex: Male
  Weight: 81 kg

DRUGS (3)
  1. FENTANYL [Suspect]
     Active Substance: FENTANYL\FENTANYL CITRATE
     Indication: Spinal pain
     Dosage: STRENGTH: 100 UG/H
     Dates: start: 2021
  2. FENTANYL [Suspect]
     Active Substance: FENTANYL\FENTANYL CITRATE
     Indication: Spinal pain
     Dosage: STRENGTH: 75 UG/H
  3. FENTANYL [Suspect]
     Active Substance: FENTANYL\FENTANYL CITRATE
     Indication: Spinal pain
     Dosage: EXPIRATION DATE: UU-MAR-2026?STRENGTH: 50 UG/H

REACTIONS (16)
  - Pyrexia [Unknown]
  - Decreased appetite [Unknown]
  - Weight decreased [Unknown]
  - Skin burning sensation [Unknown]
  - Loss of personal independence in daily activities [Unknown]
  - Gastrointestinal disorder [Unknown]
  - Feeling of body temperature change [Unknown]
  - Withdrawal syndrome [Unknown]
  - Insomnia [Unknown]
  - Hyperhidrosis [Unknown]
  - Chills [Unknown]
  - Vomiting [Unknown]
  - Product dose omission issue [Unknown]
  - Product packaging quantity issue [Unknown]
  - Device malfunction [Unknown]
  - Product availability issue [Unknown]

NARRATIVE: CASE EVENT DATE: 20230616
